FAERS Safety Report 7376526-8 (Version None)
Quarter: 2011Q1

REPORT INFORMATION
  Report Type: 
  Country: None (occurrence: None)
  Receive Date: 20110325
  Receipt Date: 20110301
  Transmission Date: 20110831
  Serious: No
  Sender: FDA-Public Use
  Company Number: US-B.I. PHARMACEUTICALS,INC./RIDGEFIELD-2011-BP-06642BP

PATIENT
  Age: 64 Year
  Sex: Male

DRUGS (1)
  1. CATAPRES [Suspect]
     Indication: HYPERTENSION
     Dosage: 0.6 MG
     Route: 048
     Dates: start: 20010101, end: 20010101

REACTIONS (3)
  - SLEEP TERROR [None]
  - NIGHT SWEATS [None]
  - ABNORMAL DREAMS [None]
